FAERS Safety Report 20774061 (Version 1)
Quarter: 2022Q2

REPORT INFORMATION
  Report Type: Spontaneous
  Country: NL (occurrence: None)
  Receive Date: 20220502
  Receipt Date: 20220502
  Transmission Date: 20220721
  Serious: Yes (Other)
  Sender: FDA-Public Use
  Company Number: NL-MICRO LABS LIMITED-ML2022-01886

PATIENT
  Age: 71 Year
  Sex: Female

DRUGS (1)
  1. SIMVASTATIN [Suspect]
     Active Substance: SIMVASTATIN
     Dosage: NONE OF THE CASES HAD USED SIMVASTATIN IN A DOSAGE ABOVE 40 MG DAILY

REACTIONS (2)
  - Drug-genetic interaction [Unknown]
  - Interstitial lung disease [Recovered/Resolved]
